FAERS Safety Report 5982194-X (Version None)
Quarter: 2008Q4

REPORT INFORMATION
  Report Type: 
  Country: None (occurrence: None)
  Receive Date: 20081208
  Receipt Date: 20081204
  Transmission Date: 20090506
  Serious: Yes (Death, Hospitalization)
  Sender: FDA-Public Use
  Company Number: BR-JNJFOC-20081201525

PATIENT
  Age: 42 Year
  Sex: Female
  Weight: 45 kg

DRUGS (6)
  1. DURAGESIC-100 [Suspect]
     Dosage: 3 PATCHES OF 50MCG EVRY 3 DAYS
     Route: 062
  2. DURAGESIC-100 [Suspect]
     Route: 062
  3. DURAGESIC-100 [Suspect]
     Route: 062
  4. DURAGESIC-100 [Suspect]
     Indication: CANCER PAIN
     Route: 062
  5. DIMORF [Concomitant]
  6. DIMORF [Concomitant]
     Indication: PAIN

REACTIONS (1)
  - MALIGNANT NEOPLASM PROGRESSION [None]
